FAERS Safety Report 25590978 (Version 1)
Quarter: 2025Q3

REPORT INFORMATION
  Report Type: Spontaneous
  Country: IN (occurrence: IN)
  Receive Date: 20250722
  Receipt Date: 20250722
  Transmission Date: 20251021
  Serious: Yes (Death, Hospitalization)
  Sender: PFIZER
  Company Number: IN-PFIZER INC-PV202500038473

PATIENT
  Age: 50 Year
  Sex: Male
  Weight: 74 kg

DRUGS (4)
  1. LORLATINIB [Suspect]
     Active Substance: LORLATINIB
     Indication: Non-small cell lung cancer metastatic
     Dosage: 100 MG, DAILY (2 MONTHS)
     Route: 048
     Dates: start: 20250210
  2. ELIQUIS [Concomitant]
     Active Substance: APIXABAN
     Dosage: 5 MG, 2X/DAY (1 TAB MORNING + 1 TAB NIGHT)
  3. LIPITOR [Concomitant]
     Active Substance: ATORVASTATIN CALCIUM
     Dosage: UNK, 1X/DAY (1 TAB NIGHT, DAILY FOR 2 MONTH)
  4. PULMONEXT KIT [Concomitant]
     Indication: Pulmonary embolism
     Dosage: UNK, 2X/DAY

REACTIONS (23)
  - Cardiac arrest [Fatal]
  - Lung disorder [Fatal]
  - Haemoglobin decreased [Recovering/Resolving]
  - Musculoskeletal stiffness [Recovered/Resolved]
  - Limb injury [Recovered/Resolved]
  - Skin laceration [Recovered/Resolved]
  - Gamma-glutamyltransferase increased [Not Recovered/Not Resolved]
  - Lipids abnormal [Not Recovered/Not Resolved]
  - Dilatation ventricular [Not Recovered/Not Resolved]
  - Heart rate increased [Unknown]
  - Headache [Not Recovered/Not Resolved]
  - Peripheral swelling [Recovering/Resolving]
  - Diarrhoea [Recovered/Resolved]
  - Irritability [Recovering/Resolving]
  - Mood swings [Not Recovered/Not Resolved]
  - Overweight [Unknown]
  - Weight increased [Not Recovered/Not Resolved]
  - Fatigue [Unknown]
  - Hyperhidrosis [Unknown]
  - Cough [Not Recovered/Not Resolved]
  - Abdominal distension [Not Recovered/Not Resolved]
  - Dyspnoea [Recovering/Resolving]
  - Anxiety [Recovered/Resolved]

NARRATIVE: CASE EVENT DATE: 20250210
